FAERS Safety Report 6947515-X (Version None)
Quarter: 2010Q3

REPORT INFORMATION
  Report Type: 
  Country: None (occurrence: None)
  Receive Date: 20100825
  Receipt Date: 20100818
  Transmission Date: 20110219
  Serious: Yes (Hospitalization, Other)
  Sender: FDA-Public Use
  Company Number: TPA2010A03492

PATIENT
  Age: 60 Year
  Sex: Male

DRUGS (7)
  1. PREVACID [Suspect]
     Indication: DYSPEPSIA
     Dosage: 30 MG, 1 IN 1 D, PER ORAL
     Route: 048
     Dates: start: 19980101, end: 20100420
  2. PREVACID [Suspect]
     Indication: GASTROOESOPHAGEAL REFLUX DISEASE
     Dosage: 30 MG, 1 IN 1 D, PER ORAL
     Route: 048
     Dates: start: 19980101, end: 20100420
  3. PLAVIX [Suspect]
     Indication: ANTICOAGULANT THERAPY
     Dosage: 75 MG, 1 IN 1 D, PER ORAL
     Route: 048
     Dates: start: 20021121, end: 20100715
  4. EFFIENT (ALL OTHER THERAPEUTIC PRODUCTS) [Concomitant]
  5. LOVENOX [Concomitant]
  6. ARIXTRA [Concomitant]
  7. PROTONIX [Concomitant]

REACTIONS (8)
  - BLOOD PRESSURE INCREASED [None]
  - CARDIAC FAILURE CONGESTIVE [None]
  - CEREBROVASCULAR ACCIDENT [None]
  - CHEST PAIN [None]
  - CORONARY ARTERY OCCLUSION [None]
  - INCORRECT DOSE ADMINISTERED [None]
  - INHIBITORY DRUG INTERACTION [None]
  - TRANSIENT ISCHAEMIC ATTACK [None]
